FAERS Safety Report 8519224-7 (Version None)
Quarter: 2012Q3

REPORT INFORMATION
  Report Type: 
  Country: None (occurrence: None)
  Receive Date: 20120718
  Receipt Date: 20120703
  Transmission Date: 20120928
  Serious: No
  Sender: FDA-Public Use
  Company Number: US-ASTRAZENECA-2010SE46844

PATIENT
  Age: 60 Year
  Sex: Female
  Weight: 58.1 kg

DRUGS (9)
  1. SEROQUEL [Suspect]
     Route: 048
     Dates: start: 20090101, end: 20100101
  2. SEROQUEL [Suspect]
     Route: 048
  3. SEROQUEL [Suspect]
     Indication: BIPOLAR DISORDER
     Route: 048
     Dates: start: 20080101
  4. VITAMIN D [Concomitant]
  5. LEVOTHYROXINE SODIUM [Concomitant]
     Indication: THYROID DISORDER
  6. SEROQUEL [Suspect]
     Route: 048
  7. SEROQUEL [Suspect]
     Route: 048
     Dates: start: 20110101
  8. LITHIUM CARBONATE [Suspect]
     Indication: BIPOLAR DISORDER
     Route: 065
  9. KLONOPIN [Concomitant]

REACTIONS (25)
  - NIGHT SWEATS [None]
  - WEIGHT INCREASED [None]
  - RASH PRURITIC [None]
  - ADVERSE DRUG REACTION [None]
  - DYSPHEMIA [None]
  - MENTAL STATUS CHANGES [None]
  - CONSTIPATION [None]
  - BLOOD CHOLESTEROL INCREASED [None]
  - IRRITABILITY [None]
  - OFF LABEL USE [None]
  - INSOMNIA [None]
  - DRY SKIN [None]
  - BLOOD CALCIUM INCREASED [None]
  - MANIA [None]
  - ABNORMAL DREAMS [None]
  - SOMNOLENCE [None]
  - ABDOMINAL PAIN UPPER [None]
  - GAIT DISTURBANCE [None]
  - THINKING ABNORMAL [None]
  - NIGHTMARE [None]
  - INTENTIONAL DRUG MISUSE [None]
  - FEELING ABNORMAL [None]
  - TOXICITY TO VARIOUS AGENTS [None]
  - MEMORY IMPAIRMENT [None]
  - BLEPHAROSPASM [None]
